FAERS Safety Report 4597496-1 (Version None)
Quarter: 2005Q1

REPORT INFORMATION
  Report Type: 
  Country: None (occurrence: None)
  Receive Date: 20050303
  Receipt Date: 20050114
  Transmission Date: 20050727
  Serious: Yes (Hospitalization)
  Sender: FDA-Public Use
  Company Number: FR-ROCHE-392635

PATIENT
  Age: 56 Year
  Sex: Female
  Weight: 68 kg

DRUGS (4)
  1. PEGASYS [Suspect]
     Indication: HEPATITIS C
     Dosage: FORMULATION REPORTED AS INJECTABLE SOLUTION.
     Route: 058
     Dates: start: 20041102, end: 20041213
  2. COPEGUS [Suspect]
     Indication: HEPATITIS C
     Route: 048
     Dates: start: 20041102, end: 20041213
  3. TEMESTA [Concomitant]
     Indication: INSOMNIA
     Route: 048
  4. ALTIZIDE/SPIRONOLACTONE [Concomitant]
     Route: 048

REACTIONS (4)
  - CONSTIPATION [None]
  - INJECTION SITE URTICARIA [None]
  - TOXIC SKIN ERUPTION [None]
  - URTICARIA GENERALISED [None]
